FAERS Safety Report 19737190 (Version 2)
Quarter: 2021Q3

REPORT INFORMATION
  Report Type: Spontaneous
  Country: SA (occurrence: SA)
  Receive Date: 20210824
  Receipt Date: 20210922
  Transmission Date: 20211014
  Serious: Yes (Hospitalization, Other)
  Sender: FDA-Public Use
  Company Number: SA-AMGEN-SAUSP2021127532

PATIENT
  Age: 55 Year
  Sex: Male

DRUGS (4)
  1. ADALIMUMAB [Suspect]
     Active Substance: ADALIMUMAB
     Indication: COLITIS ULCERATIVE
     Dosage: UNK
     Route: 065
  2. HYDROCORTISONE. [Concomitant]
     Active Substance: HYDROCORTISONE
     Route: 042
  3. PREDNISOLONE. [Concomitant]
     Active Substance: PREDNISOLONE
     Dosage: 30 MILLIGRAM, QD
  4. 5?AMINOSALICYLIC ACID [Concomitant]
     Active Substance: MESALAMINE
     Route: 048

REACTIONS (4)
  - Gastrointestinal wall thickening [Unknown]
  - Large intestine perforation [Unknown]
  - Vascular wall hypertrophy [Unknown]
  - Clostridium test positive [Unknown]
